FAERS Safety Report 5468665-3 (Version None)
Quarter: 2007Q3

REPORT INFORMATION
  Report Type: 
  Country: None (occurrence: None)
  Receive Date: 20070926
  Receipt Date: 20070914
  Transmission Date: 20080115
  Serious: Yes (Other)
  Sender: FDA-Public Use
  Company Number: US-PFIZER INC-2007078443

PATIENT
  Sex: Male
  Weight: 73.5 kg

DRUGS (8)
  1. CHANTIX [Suspect]
     Indication: SMOKING CESSATION THERAPY
     Dates: start: 20070901, end: 20070915
  2. NEXIUM [Concomitant]
  3. ALL OTHER THERAPEUTIC PRODUCTS [Concomitant]
  4. ATIVAN [Concomitant]
  5. POTASSIUM CHLORIDE [Concomitant]
  6. SOMA [Concomitant]
  7. TRAMADOL HCL [Concomitant]
  8. NEURONTIN [Concomitant]

REACTIONS (3)
  - BLINDNESS [None]
  - DIZZINESS [None]
  - FALL [None]
